FAERS Safety Report 9049789 (Version 2)
Quarter: 2013Q1

REPORT INFORMATION
  Report Type: Spontaneous
  Country: US (occurrence: US)
  Receive Date: 20130205
  Receipt Date: 20130307
  Transmission Date: 20140127
  Serious: Yes (Other)
  Sender: FDA-Public Use
  Company Number: US-PFIZER INC-2013044850

PATIENT
  Age: 61 Year
  Sex: Male
  Weight: 88.4 kg

DRUGS (3)
  1. ATENOLOL [Suspect]
     Dosage: UNK
     Dates: end: 2012
  2. VERAPAMIL HCL [Suspect]
     Indication: CARDIAC DISORDER
     Dosage: UNK
     Route: 065
     Dates: end: 2012
  3. LIPITOR [Suspect]
     Indication: BLOOD CHOLESTEROL INCREASED
     Dosage: 20 MG, 1X/DAY
     Route: 048

REACTIONS (11)
  - Pulmonary oedema [Unknown]
  - Ventricular tachycardia [Recovered/Resolved]
  - Haemophilia [Unknown]
  - Weight increased [Unknown]
  - Nervous system disorder [Unknown]
  - Blood prolactin increased [Recovered/Resolved]
  - Blood follicle stimulating hormone decreased [Recovered/Resolved]
  - Blood luteinising hormone decreased [Unknown]
  - Blood testosterone decreased [Unknown]
  - Fatigue [Not Recovered/Not Resolved]
  - Insomnia [Not Recovered/Not Resolved]
